FAERS Safety Report 7232541-6 (Version None)
Quarter: 2011Q1

REPORT INFORMATION
  Report Type: 
  Country: None (occurrence: None)
  Receive Date: 20110107
  Receipt Date: 20101223
  Transmission Date: 20110831
  Serious: Yes (Hospitalization)
  Sender: FDA-Public Use
  Company Number: 024616

PATIENT
  Sex: Female
  Weight: 115.6672 kg

DRUGS (19)
  1. LIDODERM [Concomitant]
  2. ASPIRIN [Concomitant]
  3. XANAX [Concomitant]
  4. FOLIC ACID [Concomitant]
  5. LYRICA [Concomitant]
  6. MUPIROCIN [Concomitant]
  7. METHOTREXATE [Concomitant]
  8. LISINOPRIL [Concomitant]
  9. CIMZIA [Suspect]
     Indication: RHEUMATOID ARTHRITIS
     Dosage: (400 MG 1X/4 WEEKS SUBCUTANEOUS)
     Route: 058
     Dates: start: 20101124
  10. LASIX [Concomitant]
  11. COLCHICINE [Concomitant]
  12. MIRALAX [Concomitant]
  13. OXYCODONE [Concomitant]
  14. FENTANYL [Concomitant]
  15. ALREX /01388302/ [Concomitant]
  16. CYMBALTA [Concomitant]
  17. LORATADINE [Concomitant]
  18. OMEPRAZOLE [Concomitant]
  19. TOPRAL /00586501/ [Concomitant]

REACTIONS (2)
  - PAIN [None]
  - BLISTER [None]
